FAERS Safety Report 6555016-6 (Version None)
Quarter: 2010Q1

REPORT INFORMATION
  Report Type: 
  Country: None (occurrence: None)
  Receive Date: 20100126
  Receipt Date: 20100126
  Transmission Date: 20100710
  Serious: Yes (Congenital Anomaly)
  Sender: FDA-Public Use
  Company Number: None

PATIENT
  Sex: Female

DRUGS (1)
  1. CRESTOR [Suspect]
     Indication: HYPERCHOLESTEROLAEMIA
     Dosage: 10 MG QD ORAL
     Route: 048
     Dates: start: 20090501

REACTIONS (10)
  - ASCITES [None]
  - CYSTIC LYMPHANGIOMA [None]
  - FOETAL DISORDER [None]
  - FOETAL GROWTH RETARDATION [None]
  - HYDROPS FOETALIS [None]
  - INTRA-UTERINE DEATH [None]
  - PATERNAL DRUGS AFFECTING FOETUS [None]
  - PLEURAL EFFUSION [None]
  - PRENATAL SCREENING TEST ABNORMAL [None]
  - TRISOMY 18 [None]
